FAERS Safety Report 7207138-4 (Version None)
Quarter: 2011Q1

REPORT INFORMATION
  Report Type: 
  Country: None (occurrence: None)
  Receive Date: 20110103
  Receipt Date: 20101222
  Transmission Date: 20110831
  Serious: Yes (Death)
  Sender: FDA-Public Use
  Company Number: PHHY2010US87613

PATIENT

DRUGS (1)
  1. METOPIRONE [Suspect]
     Dosage: UNK

REACTIONS (1)
  - DEATH [None]
